FAERS Safety Report 6321933-5 (Version None)
Quarter: 2009Q3

REPORT INFORMATION
  Report Type: 
  Country: None (occurrence: None)
  Receive Date: 20090821
  Receipt Date: 20090821
  Transmission Date: 20100115
  Serious: Yes (Other)
  Sender: FDA-Public Use
  Company Number: None

PATIENT
  Age: 14 Year
  Sex: Male
  Weight: 51.2565 kg

DRUGS (3)
  1. ADDERALL 10 [Suspect]
     Indication: ATTENTION DEFICIT/HYPERACTIVITY DISORDER
     Dosage: 10MG
     Dates: start: 20090729, end: 20090806
  2. BENZTROPINE 1MG Q12 HOURS [Suspect]
     Dosage: 1MG
     Dates: start: 20090806
  3. ALBUTEROL [Concomitant]

REACTIONS (3)
  - DYSPNOEA [None]
  - ORAL DISORDER [None]
  - SWOLLEN TONGUE [None]
